FAERS Safety Report 12766815 (Version 1)
Quarter: 2016Q3

REPORT INFORMATION
  Report Type: Spontaneous
  Country: US (occurrence: US)
  Receive Date: 20160921
  Receipt Date: 20160921
  Transmission Date: 20161109
  Serious: No
  Sender: FDA-Public Use
  Company Number: None

PATIENT
  Age: 82 Year

DRUGS (5)
  1. INSULLIN HUMILLIN [Concomitant]
  2. TAMSULOSIN CAP. 0.4 MG [Suspect]
     Active Substance: TAMSULOSIN
     Indication: MICTURITION DISORDER
     Route: 048
     Dates: end: 20160801
  3. LANTIS BYSTOLIC [Concomitant]
  4. LUMIGAN [Concomitant]
     Active Substance: BIMATOPROST
  5. TAMSULOSIN CAP. 0.4 MG [Suspect]
     Active Substance: TAMSULOSIN
     Indication: BLADDER DISORDER
     Route: 048
     Dates: end: 20160801

REACTIONS (4)
  - Choking [None]
  - Product physical issue [None]
  - Product quality issue [None]
  - Foreign body [None]

NARRATIVE: CASE EVENT DATE: 2016
